FAERS Safety Report 8222506 (Version 2)
Quarter: 2012Q4

REPORT INFORMATION
  Report Type: 
  Country: US (occurrence: US)
  Receive Date: 20111102
  Receipt Date: 20121023
  Transmission Date: 20130627
  Serious: No
  Sender: FDA-Public Use
  Company Number: US-AMGEN-USASP2011032520

PATIENT
  Sex: Male

DRUGS (2)
  1. ENBREL [Suspect]
     Indication: PSORIATIC ARTHROPATHY
     Dosage: 50 mg, 2 times/wk
     Route: 058
     Dates: start: 20110401
  2. STELARA [Concomitant]

REACTIONS (3)
  - Incorrect dose administered [Not Recovered/Not Resolved]
  - Overdose [Not Recovered/Not Resolved]
  - Injection site pain [Unknown]
